FAERS Safety Report 17001198 (Version 2)
Quarter: 2019Q4

REPORT INFORMATION
  Report Type: Spontaneous
  Country: US (occurrence: US)
  Receive Date: 20191106
  Receipt Date: 20191111
  Transmission Date: 20200122
  Serious: No
  Sender: FDA-Public Use
  Company Number: US-009507513-1910USA017594

PATIENT
  Sex: Female

DRUGS (2)
  1. NEXPLANON [Suspect]
     Active Substance: ETONOGESTREL
     Indication: CONTRACEPTION
     Dosage: UNK
     Dates: end: 20190909
  2. NEXPLANON [Suspect]
     Active Substance: ETONOGESTREL
     Dosage: 1 ROD, EVERY 3 YEARS
     Route: 059
     Dates: start: 20190909, end: 20191028

REACTIONS (4)
  - Implant site infection [Unknown]
  - Implant site warmth [Unknown]
  - Purulent discharge [Unknown]
  - Implant site erythema [Recovered/Resolved]

NARRATIVE: CASE EVENT DATE: 201909
